FAERS Safety Report 17035063 (Version 1)
Quarter: 2019Q4

REPORT INFORMATION
  Report Type: Spontaneous
  Country: US (occurrence: US)
  Receive Date: 20191115
  Receipt Date: 20191115
  Transmission Date: 20200122
  Serious: No
  Sender: FDA-Public Use
  Company Number: US-ASTRAZENECA-2019SF48940

PATIENT
  Age: 49 Year
  Sex: Female

DRUGS (9)
  1. GLIPIZIDE. [Concomitant]
     Active Substance: GLIPIZIDE
  2. PANCREAZE [Suspect]
     Active Substance: PANCRELIPASE AMYLASE\PANCRELIPASE LIPASE\PANCRELIPASE PROTEASE
     Indication: PANCREATIC FAILURE
     Route: 048
  3. LISINOPRIL. [Concomitant]
     Active Substance: LISINOPRIL
     Indication: HYPERTENSION
     Route: 048
     Dates: start: 2005
  4. IBUPROFEN. [Concomitant]
     Active Substance: IBUPROFEN
  5. ROSUVASTATIN CALCIUM. [Suspect]
     Active Substance: ROSUVASTATIN CALCIUM
     Indication: BLOOD CHOLESTEROL INCREASED
     Dosage: 5 MG
     Route: 048
     Dates: start: 2005
  6. SYNTHROID [Concomitant]
     Active Substance: LEVOTHYROXINE SODIUM
     Indication: THYROID DISORDER
     Dosage: 150 UG
     Route: 048
  7. METFORMIN [Concomitant]
     Active Substance: METFORMIN HYDROCHLORIDE
  8. NEXIUM [Suspect]
     Active Substance: ESOMEPRAZOLE MAGNESIUM
     Route: 048
  9. OMEPRAZOLE. [Concomitant]
     Active Substance: OMEPRAZOLE
     Dates: start: 2005

REACTIONS (4)
  - Arthritis [Not Recovered/Not Resolved]
  - Malaise [Not Recovered/Not Resolved]
  - Haemoglobin decreased [Not Recovered/Not Resolved]
  - White blood cell count decreased [Not Recovered/Not Resolved]

NARRATIVE: CASE EVENT DATE: 2005
